FAERS Safety Report 15725342 (Version 1)
Quarter: 2018Q4

REPORT INFORMATION
  Report Type: Spontaneous
  Country: FR (occurrence: FR)
  Receive Date: 20181215
  Receipt Date: 20181215
  Transmission Date: 20190205
  Serious: Yes (Life-Threatening)
  Sender: FDA-Public Use
  Company Number: FR-TEVA-2018-FR-985572

PATIENT
  Age: 56 Year
  Sex: Female
  Weight: 68 kg

DRUGS (4)
  1. VINORELBINE BASE [Suspect]
     Active Substance: VINORELBINE\VINORELBINE TARTRATE
     Indication: BREAST CANCER
     Dosage: J1-J8
     Route: 042
     Dates: start: 20180913, end: 20180920
  2. FLUOROURACILE PFIZER 50 MG/ML, SOLUTION ? DILUER POUR PERFUSION [Suspect]
     Active Substance: FLUOROURACIL
     Indication: BREAST CANCER
     Dosage: 5 DAYS PER CYCLE
     Route: 042
     Dates: start: 20181004, end: 20181008
  3. VINORELBINE BASE [Suspect]
     Active Substance: VINORELBINE\VINORELBINE TARTRATE
     Indication: BREAST CANCER
     Route: 042
     Dates: start: 20181004, end: 20181004
  4. FLUOROURACILE TEVA [Suspect]
     Active Substance: FLUOROURACIL
     Indication: BREAST CANCER
     Dosage: 3300 MILLIGRAM DAILY; 5 CONSECUTIVE DAYS PER CYCLE
     Route: 042
     Dates: start: 20180913, end: 20180917

REACTIONS (1)
  - Leukoencephalopathy [Recovering/Resolving]

NARRATIVE: CASE EVENT DATE: 20181012
